FAERS Safety Report 9892097 (Version 1)
Quarter: 2014Q1

REPORT INFORMATION
  Report Type: Report from Study
  Country: FR (occurrence: FR)
  Receive Date: 20140212
  Receipt Date: 20140212
  Transmission Date: 20141002
  Serious: Yes (Hospitalization)
  Sender: FDA-Public Use
  Company Number: FR-GLAXOSMITHKLINE-B0959394C

PATIENT
  Age: 61 Year
  Sex: Female
  Weight: 66.5 kg

DRUGS (16)
  1. PAZOPANIB [Suspect]
     Indication: NEOPLASM
     Dosage: 21200MG CUMULATIVE DOSE
     Route: 048
     Dates: start: 20131218
  2. AERIUS [Concomitant]
     Indication: SEASONAL ALLERGY
  3. DEBRIDAT [Concomitant]
     Indication: CONSTIPATION
  4. CORTANCYL [Concomitant]
  5. EUPANTOL [Concomitant]
     Indication: ABDOMINAL PAIN UPPER
  6. FUNGIZONE [Concomitant]
     Indication: INFECTION PROPHYLAXIS
  7. LYRICA [Concomitant]
     Indication: TUMOUR PAIN
     Dates: start: 20120622
  8. LYSANXIA [Concomitant]
     Indication: DEPRESSION
  9. OXYCONTIN [Concomitant]
     Indication: TUMOUR PAIN
  10. OXYNORM [Concomitant]
     Indication: TUMOUR PAIN
  11. MOVICOL [Concomitant]
     Indication: CONSTIPATION
  12. SPASFON [Concomitant]
     Indication: ABDOMINAL PAIN
  13. STILNOX [Concomitant]
     Indication: ANXIETY
  14. GAVISCON [Concomitant]
     Indication: ABDOMINAL PAIN UPPER
  15. DAFALGAN [Concomitant]
     Indication: TUMOUR PAIN
  16. SEROPLEX [Concomitant]
     Indication: DEPRESSION

REACTIONS (2)
  - Staphylococcal skin infection [Not Recovered/Not Resolved]
  - Lymphangitis [Not Recovered/Not Resolved]
